FAERS Safety Report 7905516-9 (Version None)
Quarter: 2011Q4

REPORT INFORMATION
  Report Type: 
  Country: None (occurrence: None)
  Receive Date: 20111110
  Receipt Date: 20111101
  Transmission Date: 20120403
  Serious: No
  Sender: FDA-Public Use
  Company Number: US-BIOGENIDEC-2011BI025936

PATIENT
  Sex: Male

DRUGS (1)
  1. TYSABRI [Suspect]
     Indication: MULTIPLE SCLEROSIS
     Route: 042
     Dates: start: 20100805, end: 20110330

REACTIONS (4)
  - DIARRHOEA [None]
  - CONSTIPATION [None]
  - URINARY TRACT INFECTION [None]
  - DRUG INEFFECTIVE [None]
